FAERS Safety Report 8782706 (Version 1)
Quarter: 2012Q4

REPORT INFORMATION
  Report Type: 
  Country: US (occurrence: US)
  Receive Date: 20120913
  Receipt Date: 20120913
  Transmission Date: 20130627
  Serious: No
  Sender: FDA-Public Use
  Company Number: US-ASTRAZENECA-2012SE65864

PATIENT
  Age: 62 Year
  Sex: Female
  Weight: 108.9 kg

DRUGS (11)
  1. SEROQUEL [Suspect]
     Indication: BIPOLAR DISORDER
     Route: 048
  2. ATENOLOL [Concomitant]
     Indication: BLOOD PRESSURE ABNORMAL
     Dosage: BID
     Route: 048
  3. SIMVASTATIN [Concomitant]
     Indication: BLOOD CHOLESTEROL INCREASED
     Dosage: DAILY
     Route: 048
  4. CLONAZEPAM [Concomitant]
     Indication: ANXIETY
     Dosage: BID
     Route: 048
  5. CLONAZEPAM [Concomitant]
     Indication: ANXIETY
     Dosage: HS
     Route: 048
  6. TRAZADONE [Concomitant]
     Indication: DEPRESSION
     Dosage: DAILY
     Route: 048
  7. TRAZADONE [Concomitant]
     Indication: SLEEP DISORDER
     Dosage: DAILY
     Route: 048
  8. SERTRALINE [Concomitant]
     Indication: DEPRESSION
     Dosage: DAILY
     Route: 048
  9. ASPIRIN [Concomitant]
     Indication: ANTIPLATELET THERAPY
     Route: 048
  10. VITAMIN D [Concomitant]
     Indication: VITAMIN SUPPLEMENTATION
     Dosage: DAILY
     Route: 048
  11. MULTIVITAMIN [Concomitant]
     Indication: VITAMIN SUPPLEMENTATION
     Dosage: DAILY
     Route: 048

REACTIONS (7)
  - Diarrhoea [Unknown]
  - Nausea [Unknown]
  - Abdominal pain [Unknown]
  - Gastrointestinal disorder [Unknown]
  - Hypertension [Unknown]
  - Constipation [Unknown]
  - Blood cholesterol increased [Unknown]
